FAERS Safety Report 7654816-9 (Version None)
Quarter: 2011Q3

REPORT INFORMATION
  Report Type: 
  Country: None (occurrence: None)
  Receive Date: 20110804
  Receipt Date: 20110721
  Transmission Date: 20111222
  Serious: Yes (Death)
  Sender: FDA-Public Use
  Company Number: JP-CELGENEUS-087-50794-11072366

PATIENT
  Age: 76 Year
  Sex: Male

DRUGS (38)
  1. VIDAZA [Suspect]
     Dosage: 75 MILLIGRAM/SQ. METER
     Route: 058
     Dates: start: 20110516, end: 20110518
  2. VIDAZA [Suspect]
     Dosage: 75 MILLIGRAM/SQ. METER
     Route: 058
     Dates: start: 20110711, end: 20110713
  3. ALLOZYM [Concomitant]
     Dosage: 100 MILLIGRAM
     Route: 048
     Dates: start: 20110323
  4. ALLOZYM [Concomitant]
     Dosage: 100 MILLIGRAM
     Route: 048
     Dates: start: 20110609, end: 20110713
  5. AMLODIPINE [Concomitant]
     Dosage: .2 MILLIGRAM
     Route: 048
     Dates: start: 20110323
  6. PURSENNID [Concomitant]
     Dosage: 12 MILLIGRAM
     Route: 048
     Dates: start: 20110609, end: 20110713
  7. VIDAZA [Suspect]
     Dosage: 75 MILLIGRAM/SQ. METER
     Route: 058
     Dates: start: 20110323, end: 20110325
  8. DESFERAL [Concomitant]
     Dosage: 500 MILLIGRAM
     Route: 041
     Dates: start: 20110427, end: 20110531
  9. MAGNESIUM SULFATE [Concomitant]
     Dosage: 660 MILLIGRAM
     Route: 048
     Dates: start: 20110323
  10. VIDAZA [Suspect]
     Dosage: 75 MILLIGRAM/SQ. METER
     Route: 058
     Dates: start: 20110609, end: 20110610
  11. DESFERAL [Concomitant]
     Dosage: 500 MILLIGRAM
     Route: 041
     Dates: start: 20110709, end: 20110713
  12. ADONA [Concomitant]
     Dosage: 90 MILLIGRAM
     Route: 048
     Dates: start: 20110609, end: 20110713
  13. SPIRIVA [Concomitant]
     Dosage: 18 MICROGRAM
     Route: 048
     Dates: start: 20110323
  14. CATALIN [Concomitant]
     Route: 061
     Dates: start: 20110407
  15. VIDAZA [Suspect]
     Dosage: 75 MILLIGRAM/SQ. METER
     Route: 058
     Dates: start: 20110328, end: 20110331
  16. LENDORMIN [Concomitant]
     Dosage: .25 MILLIGRAM
     Route: 048
     Dates: start: 20110323
  17. AMLODIPINE [Concomitant]
     Dosage: 5 MILLIGRAM
     Route: 048
     Dates: start: 20110609, end: 20110713
  18. POSTERISAN [Concomitant]
     Route: 061
     Dates: start: 20110323
  19. AUZEI [Concomitant]
     Dosage: 100 MILLIGRAM
     Route: 041
     Dates: start: 20110712, end: 20110712
  20. HYALEIN [Concomitant]
     Route: 061
     Dates: start: 20110620, end: 20110713
  21. VIDAZA [Suspect]
     Dosage: 75 MILLIGRAM/SQ. METER
     Route: 058
     Dates: start: 20110613, end: 20110617
  22. TAMSULOSIN HCL [Concomitant]
     Dosage: .2 MILLIGRAM
     Route: 048
     Dates: start: 20110609, end: 20110713
  23. PREDNISOLONE [Concomitant]
     Dosage: 10 MILLIGRAM
     Route: 048
     Dates: start: 20110323
  24. VIDAZA [Suspect]
     Dosage: 75 MILLIGRAM/SQ. METER
     Route: 058
     Dates: start: 20110510, end: 20110513
  25. ADONA [Concomitant]
     Dosage: 90 MILLIGRAM
     Route: 048
     Dates: start: 20110323
  26. SULFAMETHOXAZOLE [Concomitant]
     Dosage: 1 DF
     Route: 048
     Dates: start: 20110323
  27. SULFAMETHOXAZOLE [Concomitant]
     Dosage: 1 DF
     Route: 048
     Dates: start: 20110609, end: 20110713
  28. SPIRIVA [Concomitant]
     Dosage: 18 MICROGRAM
     Route: 048
     Dates: start: 20110609, end: 20110713
  29. PURSENNID [Concomitant]
     Dosage: 12 MILLIGRAM
     Route: 048
     Dates: start: 20110323
  30. ZOLPIDEM [Concomitant]
     Dosage: 5 MILLIGRAM
     Route: 048
     Dates: start: 20110407
  31. ZOLPIDEM [Concomitant]
     Dosage: 5 MILLIGRAM
     Route: 048
     Dates: start: 20110609, end: 20110713
  32. SEREVENT [Concomitant]
     Route: 048
     Dates: start: 20110407
  33. EXJADE [Concomitant]
     Dosage: 1000 MILLIGRAM
     Route: 048
     Dates: start: 20110603, end: 20110621
  34. DESFERAL [Concomitant]
     Dosage: 1000 MILLIGRAM
     Route: 041
     Dates: start: 20110622, end: 20110703
  35. TAMSULOSIN HCL [Concomitant]
     Dosage: .2 MILLIGRAM
     Route: 048
     Dates: start: 20110323
  36. PREDNISOLONE [Concomitant]
     Dosage: 10 MILLIGRAM
     Route: 048
     Dates: start: 20110609, end: 20110713
  37. SEREVENT [Concomitant]
     Route: 048
     Dates: start: 20110609, end: 20110713
  38. CATALIN [Concomitant]
     Route: 061
     Dates: start: 20110609, end: 20110713

REACTIONS (1)
  - SHOCK HAEMORRHAGIC [None]
